FAERS Safety Report 23867560 (Version 1)
Quarter: 2024Q2

REPORT INFORMATION
  Report Type: Spontaneous
  Country: US (occurrence: US)
  Receive Date: 20240517
  Receipt Date: 20240517
  Transmission Date: 20240716
  Serious: Yes (Other)
  Sender: FDA-Public Use
  Company Number: US-SANOFI-02045165

PATIENT
  Age: 62 Year
  Sex: Female

DRUGS (6)
  1. LANTUS SOLOSTAR [Suspect]
     Active Substance: INSULIN GLARGINE
     Indication: Diabetes mellitus
     Dosage: 20 UNITS QD
  2. GLIPIZIDE [Concomitant]
     Active Substance: GLIPIZIDE
  3. HUMALOG [Concomitant]
     Active Substance: INSULIN LISPRO
  4. MOUNJARO [Concomitant]
     Active Substance: TIRZEPATIDE
  5. VICTOZA [Concomitant]
     Active Substance: LIRAGLUTIDE
  6. OZEMPIC [Concomitant]
     Active Substance: SEMAGLUTIDE

REACTIONS (6)
  - Neuropathy peripheral [Unknown]
  - Glaucoma [Unknown]
  - Hypertension [Unknown]
  - Blood cholesterol increased [Unknown]
  - Blood glucose increased [Unknown]
  - Drug ineffective [Unknown]
